FAERS Safety Report 9067291 (Version 2)
Quarter: 2013Q1

REPORT INFORMATION
  Report Type: Spontaneous
  Country: FR (occurrence: FR)
  Receive Date: 20130214
  Receipt Date: 20130228
  Transmission Date: 20140127
  Serious: Yes (Other)
  Sender: FDA-Public Use
  Company Number: FR-TEVA-384770ISR

PATIENT
  Age: 68 Year
  Sex: Male

DRUGS (6)
  1. ATORVASTATIN [Suspect]
     Indication: MYOCARDIAL ISCHAEMIA
     Dosage: 80 MILLIGRAM DAILY;
     Route: 065
  2. FUSIDIC ACID [Interacting]
     Indication: STAPHYLOCOCCAL INFECTION
     Dosage: 1500 MILLIGRAM DAILY;
     Route: 048
  3. CLINDAMYCIN [Concomitant]
     Indication: STAPHYLOCOCCUS TEST
     Dosage: 2250 MILLIGRAM DAILY;
     Route: 048
  4. BISOPROLOL [Concomitant]
     Indication: MYOCARDIAL ISCHAEMIA
     Route: 065
  5. SALICYLIC ACID [Concomitant]
     Indication: MYOCARDIAL ISCHAEMIA
     Route: 065
  6. PRASUGREL [Concomitant]
     Indication: MYOCARDIAL ISCHAEMIA
     Route: 065

REACTIONS (2)
  - Rhabdomyolysis [Recovering/Resolving]
  - Drug interaction [Recovering/Resolving]
